FAERS Safety Report 19828979 (Version 2)
Quarter: 2021Q3

REPORT INFORMATION
  Report Type: Spontaneous
  Country: US (occurrence: US)
  Receive Date: 20210914
  Receipt Date: 20210920
  Transmission Date: 20211014
  Serious: No
  Sender: FDA-Public Use
  Company Number: US-GILEAD-2021-0548067

PATIENT
  Age: 7 Year
  Sex: Female
  Weight: 26.1 kg

DRUGS (3)
  1. CEFUROXIME. [Concomitant]
     Active Substance: CEFUROXIME
     Dosage: UNK MG
     Dates: start: 20210902, end: 20210906
  2. REMDESIVIR. [Suspect]
     Active Substance: REMDESIVIR
     Indication: COVID-19
     Dosage: 65 MG, ONCE
     Route: 042
     Dates: start: 20210902, end: 20210902
  3. REMDESIVIR. [Suspect]
     Active Substance: REMDESIVIR
     Dosage: 1.25 MG/ML
     Route: 042
     Dates: start: 20210903, end: 20210905

REACTIONS (2)
  - Product preparation error [Recovered/Resolved]
  - Transcription medication error [Recovered/Resolved]

NARRATIVE: CASE EVENT DATE: 202109
